FAERS Safety Report 8481990-7 (Version None)
Quarter: 2012Q3

REPORT INFORMATION
  Report Type: 
  Country: None (occurrence: None)
  Receive Date: 20120702
  Receipt Date: 20120618
  Transmission Date: 20120928
  Serious: Yes (Other)
  Sender: FDA-Public Use
  Company Number: PHHY2012FR005154

PATIENT
  Sex: Male
  Weight: 72 kg

DRUGS (7)
  1. ALISKIREN [Suspect]
     Indication: HYPERTENSION
     Dosage: 300 MG/DAY
     Route: 048
     Dates: start: 20100721, end: 20111001
  2. TELMISARTAN [Concomitant]
     Indication: HYPERTENSION
     Dosage: 80 MG/DAY 80
     Dates: start: 20050401
  3. EZETIMIBE [Concomitant]
     Indication: DYSLIPIDAEMIA
     Dosage: 1 DF/DAY
     Dates: start: 20100104
  4. GLICLAZIDE [Concomitant]
     Indication: DIABETES MELLITUS
     Dosage: 30 MG/DAY
     Dates: start: 20110420
  5. FUROSEMIDE [Concomitant]
     Indication: HYPERTENSION
     Dosage: 40 MG/DAY
     Dates: start: 20101027
  6. ALISKIREN [Suspect]
     Indication: PROTEINURIA
  7. CLOPIDOGREL [Concomitant]
     Indication: MYOCARDIAL ISCHAEMIA
     Dosage: 75 MG/DAY
     Dates: start: 20100104

REACTIONS (5)
  - HYPOTENSION [None]
  - CEREBROVASCULAR ACCIDENT [None]
  - MALAISE [None]
  - PARTIAL SEIZURES [None]
  - TONIC CLONIC MOVEMENTS [None]
